FAERS Safety Report 22589514 (Version 1)
Quarter: 2023Q2

REPORT INFORMATION
  Report Type: Spontaneous
  Country: US (occurrence: None)
  Receive Date: 20230609
  Receipt Date: 20230609
  Transmission Date: 20230721
  Serious: No
  Sender: FDA-Public Use
  Company Number: None

PATIENT
  Age: 13 Year
  Sex: Male

DRUGS (1)
  1. DUPILUMAB [Suspect]
     Active Substance: DUPILUMAB
     Dosage: 300 MG  EVERY14DAYS SUBCUTANEOUS?
     Route: 058

REACTIONS (2)
  - Pruritus [None]
  - Papule [None]

NARRATIVE: CASE EVENT DATE: 20230609
